FAERS Safety Report 12417608 (Version 1)
Quarter: 2016Q2

REPORT INFORMATION
  Report Type: Spontaneous
  Country: AT (occurrence: AT)
  Receive Date: 20160530
  Receipt Date: 20160530
  Transmission Date: 20160815
  Serious: Yes (Other)
  Sender: FDA-Public Use
  Company Number: PHHY2016AT070436

PATIENT
  Age: 72 Year
  Sex: Female
  Weight: 69 kg

DRUGS (7)
  1. SUNITINIB [Suspect]
     Active Substance: SUNITINIB
     Dosage: 37.5 MG, QD
     Route: 065
     Dates: start: 201007
  2. EVEROLIMUS [Suspect]
     Active Substance: EVEROLIMUS
     Dosage: 5 MG, QD
     Route: 065
     Dates: start: 20150225
  3. SUNITINIB [Suspect]
     Active Substance: SUNITINIB
     Dosage: 37.5 MG, QD
     Route: 065
     Dates: start: 20151011
  4. SUNITINIB [Suspect]
     Active Substance: SUNITINIB
     Dosage: 50 MG, UNK (2:1 REGIMEN)
     Route: 065
     Dates: start: 201511
  5. SUNITINIB [Suspect]
     Active Substance: SUNITINIB
     Dosage: 25 MG, QD
     Route: 065
  6. EVEROLIMUS [Suspect]
     Active Substance: EVEROLIMUS
     Indication: RENAL CELL CARCINOMA
     Dosage: 10 MG, QD
     Route: 065
     Dates: start: 20150217
  7. SUNITINIB [Suspect]
     Active Substance: SUNITINIB
     Indication: PRODUCT USED FOR UNKNOWN INDICATION
     Dosage: 50 MG, UNK
     Route: 065
     Dates: start: 20100319

REACTIONS (16)
  - Metastases to lung [Unknown]
  - Stomatitis [Unknown]
  - Arthralgia [Unknown]
  - Malignant neoplasm progression [Unknown]
  - Drug resistance [Unknown]
  - Metastases to liver [Unknown]
  - Metastases to spine [Unknown]
  - Leukopenia [Unknown]
  - Thrombocytopenia [Not Recovered/Not Resolved]
  - Metastases to central nervous system [Unknown]
  - Metastases to bone [Unknown]
  - Transaminases increased [Unknown]
  - Epilepsy [Unknown]
  - Hypertensive crisis [Unknown]
  - Movement disorder [Unknown]
  - Diarrhoea [Unknown]

NARRATIVE: CASE EVENT DATE: 201401
